FAERS Safety Report 4354993-1 (Version None)
Quarter: 2004Q2

REPORT INFORMATION
  Report Type: 
  Country: None (occurrence: None)
  Receive Date: 20040504
  Receipt Date: 20040419
  Transmission Date: 20050107
  Serious: Yes (Death, Hospitalization, Other)
  Sender: FDA-Public Use
  Company Number: RB-632-2004

PATIENT
  Age: 34 Year
  Sex: Male

DRUGS (3)
  1. BUPRENORPHINE HYDROCHLORIDE [Suspect]
     Indication: DRUG DEPENDENCE
     Dosage: BQ IV
     Route: 042
     Dates: end: 20040302
  2. COMBIVIR [Suspect]
     Indication: HIV INFECTION
     Dosage: 1 DF PO
     Route: 048
     Dates: start: 20000501, end: 20040302
  3. EFAVIRENZ [Suspect]
     Indication: HIV INFECTION
     Dosage: 600 MG QD PO
     Route: 048
     Dates: start: 20000501, end: 20040302

REACTIONS (14)
  - AKINESIA [None]
  - BACTERIAL INFECTION [None]
  - BLOOD TRIGLYCERIDES INCREASED [None]
  - CARDIO-RESPIRATORY ARREST [None]
  - CARDIOGENIC SHOCK [None]
  - CORONARY ARTERY THROMBOSIS [None]
  - EJECTION FRACTION DECREASED [None]
  - HYPOKINESIA [None]
  - INTENTIONAL MISUSE [None]
  - INTRACARDIAC THROMBUS [None]
  - LUNG DISORDER [None]
  - MYOCARDIAL INFARCTION [None]
  - VENTRICULAR FIBRILLATION [None]
  - VENTRICULAR HYPERTROPHY [None]
